FAERS Safety Report 6640840-1 (Version None)
Quarter: 2010Q1

REPORT INFORMATION
  Report Type: 
  Country: None (occurrence: None)
  Receive Date: 20100302
  Receipt Date: 20100119
  Transmission Date: 20100710
  Serious: No
  Sender: FDA-Public Use
  Company Number: 2010007803

PATIENT

DRUGS (1)
  1. TOVIAZ [Suspect]

REACTIONS (2)
  - OEDEMA PERIPHERAL [None]
  - TREMOR [None]
